FAERS Safety Report 7739225-6 (Version None)
Quarter: 2011Q3

REPORT INFORMATION
  Report Type: 
  Country: None (occurrence: None)
  Receive Date: 20110909
  Receipt Date: 20110907
  Transmission Date: 20111222
  Serious: Yes (Other)
  Sender: FDA-Public Use
  Company Number: US-PFIZER INC-2011210805

PATIENT
  Sex: Male
  Weight: 99.773 kg

DRUGS (9)
  1. DICLOFENAC [Concomitant]
     Indication: MUSCLE SPASMS
     Dosage: 20 MG, EVERY 6-8 HRS
  2. CLONIDINE [Concomitant]
     Dosage: UNK, 2X/DAY
  3. CHANTIX [Suspect]
     Dosage: UNK
     Route: 048
     Dates: start: 20110101, end: 20110830
  4. SIMVASTATIN [Concomitant]
     Dosage: 20 MG, DAILY
  5. MORPHINE [Concomitant]
     Indication: BACK PAIN
     Dosage: 200 MG, 3X/DAY
  6. LORTAB [Concomitant]
     Indication: BACK PAIN
     Dosage: UNK, (3 OR 4 TABLETS), AS NEEDED
     Route: 048
  7. CHANTIX [Suspect]
     Indication: SMOKING CESSATION THERAPY
     Dosage: 0.5 MG, DAILY
     Route: 048
     Dates: start: 20110322, end: 20110101
  8. VALIUM [Concomitant]
     Indication: MUSCLE SPASMS
     Dosage: 10 MG, 4X/DAY
  9. TRAZODONE HYDROCHLORIDE [Concomitant]
     Dosage: 100 MG, DAILY
     Route: 048

REACTIONS (1)
  - WEIGHT FLUCTUATION [None]
